FAERS Safety Report 5243962-5 (Version None)
Quarter: 2007Q1

REPORT INFORMATION
  Report Type: 
  Country: None (occurrence: None)
  Receive Date: 20070215
  Receipt Date: 20070205
  Transmission Date: 20070707
  Serious: Yes (Hospitalization)
  Sender: FDA-Public Use
  Company Number: 236101

PATIENT
  Age: 43 Year
  Sex: Female
  Weight: 53 kg

DRUGS (4)
  1. XOLAIR [Suspect]
     Indication: ASTHMA
     Dosage: 300 MG, BID, SUBCUTANEOUS
     Route: 058
     Dates: start: 20061206, end: 20070124
  2. ACE-INHIBITOR (ANGIOTENSIN-CONVERTING ENZYME INHIBITORS) [Concomitant]
  3. CORTICOSTEROIDS (UNK INGREDIENTS) (CORTICOSTEROID NOS) [Concomitant]
  4. ANTIHISTAMINES (ANTIHISTAMINES NOS) [Concomitant]

REACTIONS (3)
  - ANOREXIA [None]
  - FOOD AVERSION [None]
  - WEIGHT DECREASED [None]
